FAERS Safety Report 5096822-7 (Version None)
Quarter: 2006Q3

REPORT INFORMATION
  Report Type: 
  Country: None (occurrence: None)
  Receive Date: 20060831
  Receipt Date: 20060816
  Transmission Date: 20061208
  Serious: Yes (Hospitalization, Other)
  Sender: FDA-Public Use
  Company Number: US-2006-000228

PATIENT
  Age: 66 Year
  Sex: Female
  Weight: 68 kg

DRUGS (6)
  1. MAGNEVIST [Suspect]
     Indication: LIVER SCAN
     Dosage: 20 ML, 1 DOSE, INTRAVENOUS
     Route: 042
     Dates: start: 20051212, end: 20051212
  2. MAGNEVIST [Suspect]
     Indication: NUCLEAR MAGNETIC RESONANCE IMAGING
     Dosage: 20 ML, 1 DOSE, INTRAVENOUS
     Route: 042
     Dates: start: 20051212, end: 20051212
  3. RANITIDINE [Concomitant]
  4. ALBUTEROL SULFATE [Concomitant]
  5. MULTIVITAMINS (RETINOL, PANTHENOL) [Concomitant]
  6. RISEDRONATE SODIUM [Concomitant]

REACTIONS (9)
  - ANAPHYLACTIC REACTION [None]
  - ANXIETY [None]
  - ELECTROCARDIOGRAM ST SEGMENT DEPRESSION [None]
  - ELECTROCARDIOGRAM T WAVE INVERSION [None]
  - FAECAL INCONTINENCE [None]
  - NAUSEA [None]
  - PROCEDURAL COMPLICATION [None]
  - RESPIRATORY DISTRESS [None]
  - VOMITING [None]
